FAERS Safety Report 15439778 (Version 1)
Quarter: 2018Q3

REPORT INFORMATION
  Report Type: Spontaneous
  Country: US (occurrence: US)
  Receive Date: 20180924
  Receipt Date: 20180924
  Transmission Date: 20181021
  Serious: Yes (Hospitalization, Other)
  Sender: FDA-Public Use
  Company Number: None

PATIENT
  Age: 52 Year
  Sex: Male

DRUGS (1)
  1. RUXOLITINIB [Suspect]
     Active Substance: RUXOLITINIB
     Route: 048
     Dates: start: 20150908, end: 20170626

REACTIONS (13)
  - Cognitive disorder [None]
  - Brain abscess [None]
  - Systemic mycosis [None]
  - Adrenal cyst [None]
  - Histoplasmosis [None]
  - Adrenal disorder [None]
  - Opportunistic infection [None]
  - Infection in an immunocompromised host [None]
  - Mental status changes [None]
  - Central nervous system lesion [None]
  - Cryptococcosis [None]
  - Haemoglobin abnormal [None]
  - Platelet count abnormal [None]

NARRATIVE: CASE EVENT DATE: 20170626
